FAERS Safety Report 21203769 (Version 1)
Quarter: 2022Q3

REPORT INFORMATION
  Report Type: Spontaneous
  Country: US (occurrence: US)
  Receive Date: 20220811
  Receipt Date: 20220811
  Transmission Date: 20221027
  Serious: Yes (Other)
  Sender: FDA-Public Use
  Company Number: US-SA-SAC20220808002263

PATIENT
  Age: 41 Year
  Sex: Male

DRUGS (2)
  1. ZANTAC [Suspect]
     Active Substance: RANITIDINE HYDROCHLORIDE
     Indication: Gastrooesophageal reflux disease
     Dosage: 75 MG, QD
     Route: 065
     Dates: start: 200201, end: 200401
  2. ZANTAC [Suspect]
     Active Substance: RANITIDINE HYDROCHLORIDE
     Indication: Dyspepsia

REACTIONS (3)
  - Renal cancer [Unknown]
  - Hepatic cancer [Unknown]
  - Lung neoplasm malignant [Unknown]

NARRATIVE: CASE EVENT DATE: 20050101
